FAERS Safety Report 5500197-6 (Version None)
Quarter: 2007Q4

REPORT INFORMATION
  Report Type: 
  Country: None (occurrence: None)
  Receive Date: 20071025
  Receipt Date: 20071012
  Transmission Date: 20080405
  Serious: Yes (Life-Threatening, Hospitalization, Other)
  Sender: FDA-Public Use
  Company Number: GXKR2007IT08816

PATIENT
  Age: 36 Year
  Sex: Male

DRUGS (13)
  1. CLOZAPINE (NGX)(CLOZAPINE) UNKNOWN [Suspect]
     Indication: DEPRESSION
  2. CIPROFLOXACIN [Suspect]
     Indication: EVIDENCE BASED TREATMENT
  3. CEFOTAXIME [Suspect]
     Indication: EVIDENCE BASED TREATMENT
  4. AMIKACIN [Suspect]
     Indication: FEBRILE NEUTROPENIA
     Dosage: 1000 MG, QD, INTRAVENOUS
     Route: 042
  5. FLUCONAZOLE [Suspect]
     Indication: FEBRILE NEUTROPENIA
     Dosage: 600 MG, QD, INTRAVENOUS
     Route: 042
  6. NEUPOGEN [Suspect]
     Indication: AGRANULOCYTOSIS
     Dosage: 5 UG/KG, QD, SUBCUTANEOUS; 10 UG/KG, QD,
     Route: 058
  7. MEROPENEM(MEROPENEM) [Suspect]
     Indication: FEBRILE NEUTROPENIA
     Dosage: 6 G, QD, INTRAVENOUS
     Route: 042
  8. TEICOPLANIN(TEICOPLANIN) [Suspect]
     Indication: FEBRILE NEUTROPENIA
     Dosage: 800 MG, QD, INTRAVENOUS; 600 MG, QD, INTRAVENOUS
     Route: 042
  9. AMPHOTERICIN B [Suspect]
     Indication: FEBRILE NEUTROPENIA
     Dosage: 3 MG/KG, QD, INTRAVENOUS
     Route: 042
  10. LITHIUM CARBONATE [Concomitant]
  11. CITALOPRAM (CITALOPRAM) [Concomitant]
  12. CLOMIPRAMINE HCL [Concomitant]
  13. LORAZEPAM [Concomitant]

REACTIONS (22)
  - AGRANULOCYTOSIS [None]
  - ALANINE AMINOTRANSFERASE INCREASED [None]
  - ANAEMIA [None]
  - APPLICATION SITE REACTION [None]
  - ASPARTATE AMINOTRANSFERASE INCREASED [None]
  - BACTERIAL TOXAEMIA [None]
  - BLOOD BILIRUBIN INCREASED [None]
  - BLOOD FIBRINOGEN INCREASED [None]
  - ELECTROLYTE IMBALANCE [None]
  - FEBRILE NEUTROPENIA [None]
  - GAMMA-GLUTAMYLTRANSFERASE INCREASED [None]
  - HEPATOTOXICITY [None]
  - HYPERPYREXIA [None]
  - HYPOKALAEMIA [None]
  - INFUSION SITE REACTION [None]
  - LEUKOCYTOSIS [None]
  - LEUKOPENIA [None]
  - NEPHROPATHY TOXIC [None]
  - PRURITUS [None]
  - RASH MACULO-PAPULAR [None]
  - SEPSIS [None]
  - SKIN EXFOLIATION [None]
